FAERS Safety Report 17854868 (Version 9)
Quarter: 2020Q3

REPORT INFORMATION
  Report Type: Spontaneous
  Country: US (occurrence: US)
  Receive Date: 20200603
  Receipt Date: 20200729
  Transmission Date: 20201103
  Serious: No
  Sender: FDA-Public Use
  Company Number: US-PFIZER INC-2020215330

PATIENT
  Age: 72 Year
  Sex: Female
  Weight: 58.97 kg

DRUGS (8)
  1. PREMPRO [Suspect]
     Active Substance: ESTROGENS, CONJUGATED\MEDROXYPROGESTERONE ACETATE
     Dosage: UNK, DAILY(0.45?1 MG DAILY)
  2. OLMESARTAN MEDOXOMIL. [Concomitant]
     Active Substance: OLMESARTAN MEDOXOMIL
     Indication: HYPERTENSION
     Dosage: 20 MG, 1X/DAY (20MG, TABLET, BY MOUTH, ONCE A DAY)
     Route: 048
  3. ATORVASTATIN [Concomitant]
     Active Substance: ATORVASTATIN
     Indication: BLOOD CHOLESTEROL ABNORMAL
     Dosage: 20 MG, 1X/DAY [20MG, TABLET, BY MOUTH, ONCE DAILY,20MG BY MOUTH AT BEDTIME]
     Route: 048
     Dates: start: 2010
  4. PREMPRO [Suspect]
     Active Substance: ESTROGENS, CONJUGATED\MEDROXYPROGESTERONE ACETATE
     Indication: MENOPAUSE
     Dosage: 0.5 DF (1/2 TAB), DAILY
  5. PREMPRO [Suspect]
     Active Substance: ESTROGENS, CONJUGATED\MEDROXYPROGESTERONE ACETATE
     Indication: BONE DENSITY ABNORMAL
     Dosage: UNK, 1X/DAY (0.45MG/1.5MG; HALF OF A TABLET, BY MOUTH, ONCE IN THE MORNING)
     Route: 048
     Dates: start: 2001
  6. PREMPRO [Suspect]
     Active Substance: ESTROGENS, CONJUGATED\MEDROXYPROGESTERONE ACETATE
     Dosage: 0.5 DF, 1X/DAY (0.45MG/1.6MG, TAKES 1/2 BY MOUTH EVERY MORNING)
     Route: 048
  7. OLMESARTAN MEDOXOMIL. [Concomitant]
     Active Substance: OLMESARTAN MEDOXOMIL
     Indication: BLOOD PRESSURE ABNORMAL
     Dosage: 20 MG, DAILY (20MG BY MOUTH DAILY)
     Route: 048
     Dates: start: 2000
  8. ATOMOXETINE. [Concomitant]
     Active Substance: ATOMOXETINE HYDROCHLORIDE
     Indication: ATTENTION DEFICIT HYPERACTIVITY DISORDER
     Dosage: 60 MG, DAILY
     Dates: start: 2004, end: 20200605

REACTIONS (6)
  - Depression [Unknown]
  - Therapeutic response unexpected [Unknown]
  - Emotional disorder [Unknown]
  - Intentional product misuse [Unknown]
  - Product prescribing error [Unknown]
  - Feeling abnormal [Unknown]

NARRATIVE: CASE EVENT DATE: 2015
